FAERS Safety Report 19917705 (Version 1)
Quarter: 2021Q4

REPORT INFORMATION
  Report Type: Spontaneous
  Country: BR (occurrence: BR)
  Receive Date: 20211005
  Receipt Date: 20211005
  Transmission Date: 20220303
  Serious: Yes (Hospitalization)
  Sender: FDA-Public Use
  Company Number: BR-ABBOTT-2021A-1340687

PATIENT
  Sex: Male
  Weight: 78 kg

DRUGS (7)
  1. LIPIDIL [Suspect]
     Active Substance: FENOFIBRATE
     Indication: Blood triglycerides
     Dosage: STARTED AROUND 3 OR 2 MONTHS AGO, TAKES AT 10 A.M., DAILY DOSE: 1 TABLET
     Route: 048
     Dates: start: 2021, end: 2021
  2. ROSUVASTATIN [Concomitant]
     Active Substance: ROSUVASTATIN
     Indication: Blood triglycerides
     Dosage: AT NIGHT, AROUND 8 AND 9 P.M,; DAILY DOSE: 1 TABLET
     Route: 048
     Dates: start: 202106
  3. LOSARTAN [Concomitant]
     Active Substance: LOSARTAN
     Indication: Hypertension
     Dosage: 7 AM, STARTED AROUND 10 YEARS AGO; DAILY DOSE: 1 TABLET
     Route: 048
  4. ECASIL [Concomitant]
     Indication: Anticoagulant therapy
     Dosage: AT 11:45 A.M, STARTED AROUND 10 YEARS AGO, DAILY DOSE: 1 TABLET
     Route: 048
  5. XARELTO [Concomitant]
     Active Substance: RIVAROXABAN
     Indication: Thrombosis
     Dosage: AT LUCH TIME, STARTED 70 DAYS AGO, DAILY DOSE: 1 TABLET
     Route: 048
     Dates: start: 202107
  6. XARELTO [Concomitant]
     Active Substance: RIVAROXABAN
     Indication: COVID-19
  7. HYDROCHLOROTHIAZIDE [Concomitant]
     Active Substance: HYDROCHLOROTHIAZIDE
     Indication: Hypertension
     Dosage: TAKES IT DURING BREAKFAST, STOPPED DUE TO COVID; DAILY DOSE: 1 TABLET
     Route: 048
     Dates: start: 2011

REACTIONS (2)
  - COVID-19 [Unknown]
  - Extra dose administered [Recovered/Resolved]

NARRATIVE: CASE EVENT DATE: 20210701
